FAERS Safety Report 13586552 (Version 1)
Quarter: 2017Q2

REPORT INFORMATION
  Report Type: Spontaneous
  Country: US (occurrence: US)
  Receive Date: 20170525
  Receipt Date: 20170525
  Transmission Date: 20170830
  Serious: Yes (Hospitalization, Other)
  Sender: FDA-Public Use
  Company Number: None

PATIENT
  Age: 69 Year
  Sex: Male
  Weight: 79.8 kg

DRUGS (14)
  1. BISACODYL. [Concomitant]
     Active Substance: BISACODYL
  2. LUTEIN-ZEAXANTHIN [Concomitant]
  3. ASPIRIN. [Concomitant]
     Active Substance: ASPIRIN
  4. LENALIDOMIDE [Suspect]
     Active Substance: LENALIDOMIDE
     Route: 048
     Dates: start: 20170330, end: 20170524
  5. PRAVACHOL [Concomitant]
     Active Substance: PRAVASTATIN SODIUM
  6. CHOLECALCIFEROL (VITAMIN D) [Concomitant]
  7. CARVEDILOL (COREG) [Concomitant]
  8. AMIODARONE (CORDARONE) [Concomitant]
  9. PEMBROLIZUMAB. [Suspect]
     Active Substance: PEMBROLIZUMAB
     Route: 042
     Dates: start: 20170330, end: 20170511
  10. MULTIPLE VITAMINS-MINERALS (OCUVITE PRESERVISION) [Concomitant]
  11. LACTOBACILLUS (ACIDOPHILUS PROBIOTIC) [Concomitant]
  12. LASIX [Concomitant]
     Active Substance: FUROSEMIDE
  13. DEXAMETHASONE. [Suspect]
     Active Substance: DEXAMETHASONE
     Route: 048
     Dates: start: 20170330, end: 20170504
  14. LENALIDOMIDE (REVLIMID) [Concomitant]

REACTIONS (1)
  - Pneumonitis [None]

NARRATIVE: CASE EVENT DATE: 20170525
